FAERS Safety Report 19943698 (Version 8)
Quarter: 2024Q4

REPORT INFORMATION
  Report Type: Spontaneous
  Country: US (occurrence: US)
  Receive Date: 20211012
  Receipt Date: 20241202
  Transmission Date: 20250115
  Serious: Yes (Hospitalization, Disabling, Other)
  Sender: ORGANON
  Company Number: US-ORGANON-O2110USA000716

PATIENT
  Sex: Male

DRUGS (7)
  1. SINGULAIR [Suspect]
     Active Substance: MONTELUKAST SODIUM
     Dosage: 10 MILLIGRAM, QD
     Route: 048
     Dates: start: 2000, end: 2021
  2. SINGULAIR [Suspect]
     Active Substance: MONTELUKAST SODIUM
     Dosage: 1 TABLET, QD (BEDTIME)
     Route: 048
     Dates: start: 20171217
  3. SINGULAIR [Suspect]
     Active Substance: MONTELUKAST SODIUM
     Dosage: 1 TABLET, QD (AT BEDTIME)
     Route: 048
     Dates: start: 20181219, end: 20200513
  4. ALBUTEROL [Suspect]
     Active Substance: ALBUTEROL
     Indication: Asthma
     Dosage: INHALER
  5. PROAIR HFA [Concomitant]
     Active Substance: ALBUTEROL SULFATE
     Indication: Cough
     Dosage: 2 PUFF, Q6H (INHALER)
     Route: 048
     Dates: start: 20180103, end: 20180203
  6. PROAIR HFA [Concomitant]
     Active Substance: ALBUTEROL SULFATE
     Dosage: 2 PUFF, Q6H AS NEEDED (INHALER)
     Route: 048
     Dates: start: 20190119, end: 20190222
  7. AMOXIL SODIUM [Concomitant]
     Indication: Tooth abscess
     Dosage: UNK, BID
     Route: 048
     Dates: start: 20180113

REACTIONS (8)
  - Bipolar I disorder [Not Recovered/Not Resolved]
  - Neuropsychological symptoms [Not Recovered/Not Resolved]
  - Major depression [Recovering/Resolving]
  - Post-traumatic stress disorder [Recovering/Resolving]
  - Affective disorder [Unknown]
  - Suicidal ideation [Recovered/Resolved]
  - Obesity [Unknown]
  - Anxiety [Not Recovered/Not Resolved]

NARRATIVE: CASE EVENT DATE: 20000101
